FAERS Safety Report 5550779-0 (Version None)
Quarter: 2007Q4

REPORT INFORMATION
  Report Type: 
  Country: None (occurrence: None)
  Receive Date: 20071212
  Receipt Date: 20071129
  Transmission Date: 20080405
  Serious: Yes (Hospitalization, Other)
  Sender: FDA-Public Use
  Company Number: US-JNJFOC-20071200726

PATIENT
  Sex: Female
  Weight: 79.38 kg

DRUGS (7)
  1. DURAGESIC-100 [Suspect]
     Indication: PAIN
     Route: 062
  2. FLEXERIL [Concomitant]
     Indication: MUSCLE SPASMS
  3. PHENERGAN HCL [Concomitant]
     Indication: VOMITING
     Route: 048
  4. PHENERGAN HCL [Concomitant]
     Indication: NAUSEA
     Dosage: AS NEEDED EVERY 4 HOURS
     Route: 048
  5. COMPAZINE [Concomitant]
     Indication: VOMITING
     Dosage: AS NEEDED EVERY 4 HOURS
     Route: 054
  6. LEVOTHROID [Concomitant]
     Indication: THYROID DISORDER
     Route: 048
  7. KLONOPIN [Concomitant]
     Indication: MENTAL DISORDER
     Route: 048

REACTIONS (20)
  - APPLICATION SITE EXCORIATION [None]
  - ARTHRALGIA [None]
  - BACK DISORDER [None]
  - BREAKTHROUGH PAIN [None]
  - DEPRESSION [None]
  - DRUG ADMINISTERED AT INAPPROPRIATE SITE [None]
  - DRUG DOSE OMISSION [None]
  - FIBROMYALGIA [None]
  - GASTRIC DISORDER [None]
  - HIP FRACTURE [None]
  - MUSCLE SPASMS [None]
  - NEURALGIA [None]
  - OEDEMA PERIPHERAL [None]
  - OSTEOARTHRITIS [None]
  - PHARMACEUTICAL PRODUCT COMPLAINT [None]
  - RAYNAUD'S PHENOMENON [None]
  - RENAL CELL CARCINOMA STAGE UNSPECIFIED [None]
  - SLEEP DISORDER [None]
  - WITHDRAWAL SYNDROME [None]
  - WRONG TECHNIQUE IN DRUG USAGE PROCESS [None]
